FAERS Safety Report 6267086-3 (Version None)
Quarter: 2009Q3

REPORT INFORMATION
  Report Type: 
  Country: None (occurrence: None)
  Receive Date: 20090714
  Receipt Date: 20090707
  Transmission Date: 20100115
  Serious: Yes (Life-Threatening, Hospitalization)
  Sender: FDA-Public Use
  Company Number: DE-BRISTOL-MYERS SQUIBB COMPANY-14640718

PATIENT
  Age: 65 Year
  Sex: Female
  Weight: 94 kg

DRUGS (3)
  1. CETUXIMAB [Suspect]
     Indication: GASTROOESOPHAGEAL CANCER
     Dosage: RECCENT INFUSION ON 19MAY09 CETUXIMAB 5 MG/ML
     Route: 042
     Dates: start: 20090401
  2. CISPLATIN [Suspect]
     Indication: GASTROOESOPHAGEAL CANCER
     Dosage: GIVEN ON DAY 1 OF CYCLE RECENT INFUSION ON 6 MAY09
     Route: 042
     Dates: start: 20090402
  3. XELODA [Suspect]
     Indication: GASTROOESOPHAGEAL CANCER
     Dosage: FORM-TABS GIVEN ON DAY 1-15 RECENT DOSE ON 20MAY09
     Route: 048
     Dates: start: 20090401

REACTIONS (3)
  - DEEP VEIN THROMBOSIS [None]
  - PNEUMONIA [None]
  - PULMONARY EMBOLISM [None]
